FAERS Safety Report 22351693 (Version 1)
Quarter: 2023Q2

REPORT INFORMATION
  Report Type: Spontaneous
  Country: US (occurrence: US)
  Receive Date: 20230522
  Receipt Date: 20230522
  Transmission Date: 20230722
  Serious: Yes (Hospitalization)
  Sender: FDA-Public Use
  Company Number: US-BEH-2023158862

PATIENT
  Age: 45 Year
  Sex: Male
  Weight: 117.91 kg

DRUGS (1)
  1. HAEGARDA [Suspect]
     Active Substance: HUMAN C1-ESTERASE INHIBITOR
     Indication: Hereditary angioedema
     Dosage: 7400 INTERNATIONAL UNIT, BIW
     Route: 058
     Dates: start: 20210517

REACTIONS (5)
  - Hereditary angioedema [Unknown]
  - Hereditary angioedema [Unknown]
  - Hereditary angioedema [Unknown]
  - Unhealthy lifestyle [Unknown]
  - Weight decreased [Unknown]

NARRATIVE: CASE EVENT DATE: 20230119
